FAERS Safety Report 19595054 (Version 2)
Quarter: 2022Q1

REPORT INFORMATION
  Report Type: Spontaneous
  Country: US (occurrence: US)
  Receive Date: 20210722
  Receipt Date: 20220330
  Transmission Date: 20220423
  Serious: No
  Sender: FDA-Public Use
  Company Number: US-PFIZER INC-2021756667

PATIENT
  Age: 91 Year
  Sex: Female

DRUGS (1)
  1. PREMARIN [Suspect]
     Active Substance: ESTROGENS, CONJUGATED
     Indication: Urinary tract infection
     Dosage: 0.5 APPLICATORFUL, TWICE A WEEK
     Route: 067

REACTIONS (4)
  - Pain [Unknown]
  - Laryngitis [Unknown]
  - Drug effective for unapproved indication [Unknown]
  - Off label use [Unknown]
